FAERS Safety Report 15716891 (Version 1)
Quarter: 2018Q4

REPORT INFORMATION
  Report Type: Spontaneous
  Country: US (occurrence: US)
  Receive Date: 20181212
  Receipt Date: 20181212
  Transmission Date: 20190205
  Serious: Yes (Other)
  Sender: FDA-Public Use
  Company Number: None

PATIENT
  Age: 58 Year
  Sex: Female

DRUGS (1)
  1. ESTRADIOL 0.025 MG/24HR PATCH MYLAN [Suspect]
     Active Substance: ESTRADIOL
     Indication: HORMONE REPLACEMENT THERAPY
     Dosage: ?          OTHER FREQUENCY:APPLY ONCE WEEKLY;?
     Route: 062

REACTIONS (1)
  - Pruritus [None]

NARRATIVE: CASE EVENT DATE: 20181030
